FAERS Safety Report 16641264 (Version 1)
Quarter: 2019Q3

REPORT INFORMATION
  Report Type: Spontaneous
  Country: US (occurrence: US)
  Receive Date: 20190729
  Receipt Date: 20190729
  Transmission Date: 20191004
  Serious: Yes (Hospitalization, Other)
  Sender: FDA-Public Use
  Company Number: US-SUN PHARMACEUTICAL INDUSTRIES LTD-2019R1-197764

PATIENT
  Sex: Female

DRUGS (2)
  1. GEMFIBROZIL. [Suspect]
     Active Substance: GEMFIBROZIL
     Indication: PANCREATITIS ACUTE
     Dosage: 600 MILLIGRAM, BID
     Route: 048
  2. FISH OIL [Concomitant]
     Active Substance: FISH OIL
     Indication: PANCREATITIS ACUTE
     Dosage: UNK
     Route: 065

REACTIONS (4)
  - Pancreatitis relapsing [Unknown]
  - Premature delivery [Not Recovered/Not Resolved]
  - Exposure during pregnancy [Unknown]
  - Treatment noncompliance [Unknown]
